FAERS Safety Report 14562621 (Version 4)
Quarter: 2018Q2

REPORT INFORMATION
  Report Type: Spontaneous
  Country: GB (occurrence: GB)
  Receive Date: 20180222
  Receipt Date: 20180514
  Transmission Date: 20180711
  Serious: Yes (Hospitalization)
  Sender: FDA-Public Use
  Company Number: GB-MYLANLABS-2018M1012226

PATIENT
  Age: 69 Year
  Sex: Male

DRUGS (3)
  1. CLOZARIL [Suspect]
     Active Substance: CLOZAPINE
     Indication: SCHIZOPHRENIA
     Dosage: UNK
     Route: 048
     Dates: start: 20141018, end: 201710
  2. RISPERIDONE. [Suspect]
     Active Substance: RISPERIDONE
     Indication: PRODUCT USED FOR UNKNOWN INDICATION
     Dosage: UNK
  3. CLOZARIL [Suspect]
     Active Substance: CLOZAPINE
     Dosage: UNK
     Route: 048
     Dates: start: 20180326

REACTIONS (14)
  - Blood creatinine increased [Unknown]
  - Urinary tract infection [Unknown]
  - Laboratory test abnormal [Unknown]
  - Haemoglobin decreased [Recovering/Resolving]
  - C-reactive protein increased [Unknown]
  - Drug ineffective [Unknown]
  - Constipation [Unknown]
  - Urinary retention [Unknown]
  - Psychiatric symptom [Unknown]
  - Blood sodium decreased [Unknown]
  - Renal impairment [Unknown]
  - Neutrophil count increased [Unknown]
  - Red blood cell count decreased [Unknown]
  - White blood cell count increased [Unknown]

NARRATIVE: CASE EVENT DATE: 2018
